FAERS Safety Report 5070826-2 (Version None)
Quarter: 2006Q3

REPORT INFORMATION
  Report Type: 
  Country: None (occurrence: None)
  Receive Date: 20060804
  Receipt Date: 20060505
  Transmission Date: 20061208
  Serious: No
  Sender: FDA-Public Use
  Company Number: US-GLAXOSMITHKLINE-A0604456A

PATIENT
  Age: 51 Year
  Sex: Female

DRUGS (2)
  1. NICORETTE [Suspect]
     Dates: start: 20060504, end: 20060504
  2. NICORETTE (MINT) [Suspect]

REACTIONS (2)
  - INTENTIONAL DRUG MISUSE [None]
  - NAUSEA [None]
